FAERS Safety Report 25792774 (Version 1)
Quarter: 2025Q3

REPORT INFORMATION
  Report Type: Spontaneous
  Country: JP (occurrence: JP)
  Receive Date: 20250911
  Receipt Date: 20250911
  Transmission Date: 20251021
  Serious: Yes (Hospitalization)
  Sender: MERCK SHARP & DOHME LLC
  Company Number: JP-009507513-2326761

PATIENT
  Age: 59 Year
  Sex: Female

DRUGS (1)
  1. PEMBROLIZUMAB [Suspect]
     Active Substance: PEMBROLIZUMAB
     Indication: Hypopharyngeal cancer
     Route: 065
     Dates: start: 202201, end: 202311

REACTIONS (2)
  - Peripheral arterial occlusive disease [Recovering/Resolving]
  - Acquired perforating dermatosis [Recovering/Resolving]

NARRATIVE: CASE EVENT DATE: 20240101
